FAERS Safety Report 17313818 (Version 1)
Quarter: 2020Q1

REPORT INFORMATION
  Report Type: Spontaneous
  Country: US (occurrence: US)
  Receive Date: 20200124
  Receipt Date: 20200124
  Transmission Date: 20200409
  Serious: Yes (Death, Hospitalization)
  Sender: FDA-Public Use
  Company Number: US-HETERO-HET2020US00059

PATIENT
  Age: 57 Year

DRUGS (4)
  1. SILDENAFIL. [Interacting]
     Active Substance: SILDENAFIL
     Dosage: 10 MG, TID DOSE DECRESED
     Route: 065
  2. SILDENAFIL. [Interacting]
     Active Substance: SILDENAFIL
     Dosage: 20 MG, TID
     Route: 065
  3. SILDENAFIL. [Suspect]
     Active Substance: SILDENAFIL
     Indication: PULMONARY ARTERIAL HYPERTENSION
     Dosage: 20 MG, TID
     Route: 065
  4. COBICISTAT W/ELVITEGRAVIR/EMTRICITA/07857201/ [Interacting]
     Active Substance: COBICISTAT\ELVITEGRAVIR\EMTRICITABINE\TENOFOVIR DISOPROXIL FUMARATE
     Indication: HIV INFECTION
     Dosage: UNK
     Route: 065

REACTIONS (4)
  - Acute respiratory failure [Fatal]
  - Hypotension [Unknown]
  - Pulmonary arterial hypertension [Unknown]
  - Drug interaction [Unknown]
